FAERS Safety Report 5015535-0 (Version None)
Quarter: 2006Q2

REPORT INFORMATION
  Report Type: 
  Country: None (occurrence: None)
  Receive Date: 20060601
  Receipt Date: 20060524
  Transmission Date: 20061013
  Serious: Yes (Hospitalization)
  Sender: FDA-Public Use
  Company Number: FR-AVENTIS-200612942EU

PATIENT
  Age: 79 Year
  Sex: Male
  Weight: 114 kg

DRUGS (4)
  1. FLUDEX [Suspect]
     Indication: HYPERTENSIVE CARDIOMYOPATHY
     Dosage: DOSE: UNK
     Route: 048
     Dates: start: 20060113, end: 20060126
  2. COZAAR [Suspect]
     Indication: HYPERTENSIVE CARDIOMYOPATHY
     Dosage: DOSE: UNK
     Route: 048
     Dates: end: 20060126
  3. PIROXICAM [Suspect]
     Indication: ARTHRALGIA
     Dosage: DOSE: UNK
     Route: 048
     Dates: start: 20051215, end: 20060126
  4. OMEPRAZOLE [Concomitant]
     Dosage: DOSE: UNK

REACTIONS (1)
  - RENAL FAILURE ACUTE [None]
